FAERS Safety Report 5460548-8 (Version None)
Quarter: 2007Q3

REPORT INFORMATION
  Report Type: 
  Country: None (occurrence: None)
  Receive Date: 20070919
  Receipt Date: 20070913
  Transmission Date: 20080115
  Serious: Yes (Hospitalization)
  Sender: FDA-Public Use
  Company Number: DE-PFIZER INC-2006091562

PATIENT
  Sex: Male
  Weight: 74 kg

DRUGS (20)
  1. SU-011,248 [Suspect]
     Indication: METASTATIC RENAL CELL CARCINOMA
     Route: 048
  2. PANTOPRAZOLE SODIUM [Concomitant]
     Route: 048
  3. ACC [Concomitant]
     Dates: start: 20060401
  4. ESOMEPRAZOLE MAGNESIUM [Concomitant]
     Route: 048
  5. BETA-ACETYLDIGOXIN [Concomitant]
  6. METAMIZOLE [Concomitant]
     Route: 048
  7. BISOPROLOL [Concomitant]
  8. PREGABALIN [Concomitant]
     Route: 048
  9. OXYCODONE HCL [Concomitant]
     Route: 048
  10. METOCLOPRAMIDE [Concomitant]
     Route: 048
  11. MOVICOL [Concomitant]
     Route: 048
     Dates: start: 20060301, end: 20060401
  12. MOVICOL [Concomitant]
  13. SODIUM PICOSULFATE [Concomitant]
     Dates: start: 20060301, end: 20060401
  14. SODIUM PICOSULFATE [Concomitant]
  15. TINZAPARIN SODIUM [Concomitant]
  16. DIMETICONE [Concomitant]
  17. ASPIRIN [Concomitant]
     Dates: start: 20060614, end: 20060620
  18. DICLOFENAC [Concomitant]
     Route: 048
     Dates: start: 20050301, end: 20060301
  19. METOPROLOL SUCCINATE [Concomitant]
     Route: 048
     Dates: start: 20050301
  20. ACYCLOVIR [Concomitant]
     Route: 048
     Dates: start: 20060401

REACTIONS (2)
  - INFECTION [None]
  - PNEUMONIA [None]
